FAERS Safety Report 4566858-0 (Version None)
Quarter: 2005Q1

REPORT INFORMATION
  Report Type: 
  Country: None (occurrence: None)
  Receive Date: 20050201
  Receipt Date: 20020418
  Transmission Date: 20050727
  Serious: Yes (Other)
  Sender: FDA-Public Use
  Company Number: US-BRISTOL-MYERS SQUIBB COMPANY-11841392

PATIENT
  Age: 40 Year
  Sex: Male

DRUGS (8)
  1. STADOL [Suspect]
     Route: 045
     Dates: start: 19970827, end: 19990323
  2. DEPAKOTE [Concomitant]
  3. METHYLPREDNISOLONE [Concomitant]
  4. PREDNISONE [Concomitant]
  5. NEURONTIN [Concomitant]
  6. HYDROCODONE + ACETAMINOPHEN [Concomitant]
  7. PROPOXYPHENE HCL [Concomitant]
  8. OXYCONTIN [Concomitant]

REACTIONS (2)
  - DEPENDENCE [None]
  - DRUG WITHDRAWAL SYNDROME [None]
